FAERS Safety Report 19168455 (Version 1)
Quarter: 2021Q2

REPORT INFORMATION
  Report Type: Spontaneous
  Country: US (occurrence: US)
  Receive Date: 20210422
  Receipt Date: 20210422
  Transmission Date: 20210717
  Serious: No
  Sender: FDA-Public Use
  Company Number: US-BAYER-2021-128804

PATIENT

DRUGS (1)
  1. ALEVE [Suspect]
     Active Substance: NAPROXEN SODIUM
     Dosage: UNK,TOOK 2 TABLETS AND THEN I TOOK ANOTHER 2 15 MINUTES LATER
     Route: 065

REACTIONS (2)
  - Incorrect dosage administered [Unknown]
  - Inappropriate schedule of product administration [Unknown]
